FAERS Safety Report 9423243 (Version 3)
Quarter: 2014Q2

REPORT INFORMATION
  Report Type: Spontaneous
  Country: US (occurrence: US)
  Receive Date: 20130726
  Receipt Date: 20140513
  Transmission Date: 20141212
  Serious: Yes (Other)
  Sender: FDA-Public Use
  Company Number: US-PFIZER INC-2013218571

PATIENT
  Age: 64 Year
  Sex: Female

DRUGS (1)
  1. DILANTIN-125 [Suspect]
     Indication: CONVULSION
     Dosage: 300 MG, DAILY

REACTIONS (7)
  - Borrelia test positive [Unknown]
  - Blood alkaline phosphatase increased [Unknown]
  - Blood cholesterol increased [Unknown]
  - Vitamin D decreased [Unknown]
  - Blood calcium decreased [Unknown]
  - Bone density decreased [Unknown]
  - Tooth loss [Unknown]
